FAERS Safety Report 13973243 (Version 1)
Quarter: 2017Q3

REPORT INFORMATION
  Report Type: Spontaneous
  Country: GB (occurrence: GB)
  Receive Date: 20170915
  Receipt Date: 20170915
  Transmission Date: 20171128
  Serious: Yes (Other)
  Sender: FDA-Public Use
  Company Number: GB-GALDERMA-GB17007743

PATIENT
  Age: 43 Year
  Sex: Male
  Weight: 76 kg

DRUGS (1)
  1. DOXYCYCLINE. [Suspect]
     Active Substance: DOXYCYCLINE
     Indication: PRODUCT USED FOR UNKNOWN INDICATION
     Dates: start: 20170817

REACTIONS (1)
  - Eyelid oedema [Recovered/Resolved]

NARRATIVE: CASE EVENT DATE: 20170817
